FAERS Safety Report 8271760-7 (Version None)
Quarter: 2012Q2

REPORT INFORMATION
  Report Type: 
  Country: None (occurrence: None)
  Receive Date: 20120410
  Receipt Date: 20111220
  Transmission Date: 20120825
  Serious: No
  Sender: FDA-Public Use
  Company Number: US-BAUSCH-2011BL008980

PATIENT
  Age: 60 Year
  Sex: Male

DRUGS (2)
  1. ZIRGAN [Suspect]
     Indication: HERPES ZOSTER
     Route: 047
     Dates: start: 20111201, end: 20111201
  2. VALTREX [Concomitant]

REACTIONS (1)
  - NAUSEA [None]
